FAERS Safety Report 7124368-0 (Version None)
Quarter: 2010Q4

REPORT INFORMATION
  Report Type: 
  Country: None (occurrence: None)
  Receive Date: 20101126
  Receipt Date: 20101123
  Transmission Date: 20110411
  Serious: Yes (Hospitalization)
  Sender: FDA-Public Use
  Company Number: PHHY2010US66462

PATIENT
  Sex: Female

DRUGS (5)
  1. TOBI [Suspect]
     Indication: CYSTIC FIBROSIS
     Dosage: 300 MG, BID
  2. AZITHROMYCIN [Concomitant]
     Dosage: UNK
  3. MINOCYCLINE [Concomitant]
     Dosage: 100 MG, BID
  4. PULMOZYME [Concomitant]
     Indication: CYSTIC FIBROSIS
  5. LACTULOSE [Concomitant]
     Indication: CONSTIPATION

REACTIONS (1)
  - PSEUDOMONAS INFECTION [None]
